FAERS Safety Report 8810974 (Version 1)
Quarter: 2012Q4

REPORT INFORMATION
  Report Type: 
  Country: US (occurrence: US)
  Receive Date: 20120927
  Receipt Date: 20120927
  Transmission Date: 20130627
  Serious: Yes (Death, Hospitalization, Other)
  Sender: FDA-Public Use
  Company Number: US-ROXANE LABORATORIES, INC.-2012-EU-04761GD

PATIENT
  Age: 21 Month
  Sex: Male

DRUGS (2)
  1. MORPHINE [Suspect]
     Route: 048
  2. NALOXONE [Suspect]

REACTIONS (7)
  - Brain death [Fatal]
  - Cyanosis [Unknown]
  - Lethargy [Unknown]
  - Miosis [Unknown]
  - Hypotension [Unknown]
  - Decerebration [Unknown]
  - Posturing [Unknown]
